FAERS Safety Report 4267093-6 (Version None)
Quarter: 2004Q1

REPORT INFORMATION
  Report Type: 
  Country: None (occurrence: None)
  Receive Date: 20040108
  Receipt Date: 20031215
  Transmission Date: 20041129
  Serious: Yes (Other)
  Sender: FDA-Public Use
  Company Number: PHEH2003US11439

PATIENT
  Age: 70 Year
  Sex: Female

DRUGS (5)
  1. ESTRADERM [Suspect]
     Indication: OSTEOPOROSIS
     Dosage: .05 MG, TWICE WEEKLY
     Route: 062
     Dates: start: 19880101
  2. ALBUTEROL [Concomitant]
     Indication: ASTHMA
  3. ASPIRIN [Concomitant]
     Indication: ANGINA PECTORIS
  4. PLAVIX [Concomitant]
  5. LASIX [Concomitant]

REACTIONS (6)
  - ANGINA PECTORIS [None]
  - ASTHMA [None]
  - CHEST PAIN [None]
  - DYSPNOEA [None]
  - HYDROTHORAX [None]
  - OEDEMA PERIPHERAL [None]
